FAERS Safety Report 5493914-5 (Version None)
Quarter: 2007Q4

REPORT INFORMATION
  Report Type: 
  Country: None (occurrence: None)
  Receive Date: 20071023
  Receipt Date: 20071009
  Transmission Date: 20080405
  Serious: Yes (Other)
  Sender: FDA-Public Use
  Company Number: PT-MERCK-0710PRT00006

PATIENT
  Age: 5 Year
  Sex: Male
  Weight: 27 kg

DRUGS (4)
  1. SINGULAIR [Suspect]
     Indication: ASTHMA
     Route: 048
     Dates: start: 20050901, end: 20060101
  2. SINGULAIR [Suspect]
     Route: 048
     Dates: start: 20060101, end: 20060701
  3. STIRIPENTOL [Concomitant]
     Indication: MYOCLONIC EPILEPSY
     Route: 048
     Dates: start: 20040601
  4. VALPROATE SODIUM [Concomitant]
     Indication: MYOCLONIC EPILEPSY
     Route: 048

REACTIONS (3)
  - DYSKINESIA [None]
  - EPILEPSY [None]
  - PETIT MAL EPILEPSY [None]
